FAERS Safety Report 7153664-6 (Version None)
Quarter: 2010Q4

REPORT INFORMATION
  Report Type: 
  Country: None (occurrence: None)
  Receive Date: 20101123
  Receipt Date: 20101012
  Transmission Date: 20110411
  Serious: No
  Sender: FDA-Public Use
  Company Number: 020312

PATIENT
  Sex: Female
  Weight: 74.8 kg

DRUGS (9)
  1. CIMZIA [Suspect]
     Indication: CROHN'S DISEASE
     Dosage: (400 MG, MONTHLY SUBCUTANEOUS)
     Route: 058
     Dates: start: 20100301
  2. PENTASA [Concomitant]
  3. ENTOCORT EC [Concomitant]
  4. CIPRO [Concomitant]
  5. PANTOPRAZOLE [Concomitant]
  6. ZOLOFT [Concomitant]
  7. WELLBUTRIN [Concomitant]
  8. TRAZODONE [Concomitant]
  9. NIASPAN [Concomitant]

REACTIONS (5)
  - CROHN'S DISEASE [None]
  - HEADACHE [None]
  - NASOPHARYNGITIS [None]
  - PAIN [None]
  - PRODUCTIVE COUGH [None]
